FAERS Safety Report 16967855 (Version 2)
Quarter: 2019Q4

REPORT INFORMATION
  Report Type: Report from Study
  Country: US (occurrence: US)
  Receive Date: 20191028
  Receipt Date: 20191122
  Transmission Date: 20200122
  Serious: Yes (Death)
  Sender: FDA-Public Use
  Company Number: US-OTSUKA-2019_036363

PATIENT
  Sex: Female

DRUGS (1)
  1. DEXTROMETHORPHAN/QUINIDINE [Suspect]
     Active Substance: DEXTROMETHORPHAN HYDROBROMIDE\QUINIDINE SULFATE
     Indication: AFFECT LABILITY
     Dosage: 1 DF (20/10 MG), FOR 7 DAYS
     Route: 048
     Dates: start: 20181210, end: 20181213

REACTIONS (5)
  - Listless [Unknown]
  - Staring [Unknown]
  - Dementia Alzheimer^s type [Fatal]
  - Lethargy [Unknown]
  - Cardiac failure congestive [Fatal]
